FAERS Safety Report 6188087-X (Version None)
Quarter: 2009Q2

REPORT INFORMATION
  Report Type: 
  Country: None (occurrence: None)
  Receive Date: 20090511
  Receipt Date: 20090126
  Transmission Date: 20091009
  Serious: Yes (Other)
  Sender: FDA-Public Use
  Company Number: 611209

PATIENT
  Age: 52 Year
  Sex: Female
  Weight: 57.2 kg

DRUGS (4)
  1. FUZEON [Suspect]
     Indication: ACQUIRED IMMUNODEFICIENCY SYNDROME
     Dosage: 90 MG 2 PER DAY SUBCUTANEOUS
     Route: 058
     Dates: start: 20090114, end: 20090126
  2. RITONAVIR [Concomitant]
  3. ETRAVIRINE (ETRAVIRINE) [Concomitant]
  4. RALTEGRAVIR  (RALTEGRAVIR) [Concomitant]

REACTIONS (2)
  - INJECTION SITE RASH [None]
  - RASH [None]
